FAERS Safety Report 13279460 (Version 4)
Quarter: 2017Q2

REPORT INFORMATION
  Report Type: Spontaneous
  Country: US (occurrence: US)
  Receive Date: 20170228
  Receipt Date: 20170613
  Transmission Date: 20170830
  Serious: Yes (Hospitalization)
  Sender: FDA-Public Use
  Company Number: US-BIOGEN-2017BI00363206

PATIENT
  Age: 44 Year
  Sex: Male

DRUGS (1)
  1. TECFIDERA [Suspect]
     Active Substance: DIMETHYL FUMARATE
     Indication: MULTIPLE SCLEROSIS
     Route: 065
     Dates: start: 20170213, end: 20170218

REACTIONS (6)
  - Tachycardia [Unknown]
  - Dyspnoea [Recovered/Resolved]
  - Nausea [Unknown]
  - Autoimmune disorder [Not Recovered/Not Resolved]
  - Heart rate decreased [Recovered/Resolved]
  - Chest pain [Unknown]

NARRATIVE: CASE EVENT DATE: 20170218
